FAERS Safety Report 10070184 (Version 2)
Quarter: 2014Q2

REPORT INFORMATION
  Report Type: Spontaneous
  Country: US (occurrence: US)
  Receive Date: 20140410
  Receipt Date: 20140410
  Transmission Date: 20141212
  Serious: Yes (Other)
  Sender: FDA-Public Use
  Company Number: CHPA2014US004674

PATIENT
  Age: 68 Year
  Sex: Male

DRUGS (3)
  1. DICLOFENAC POTASSIUM TABLETS [Suspect]
     Indication: OSTEOARTHRITIS
  2. VOLTAREN GEL [Suspect]
     Indication: OSTEOARTHRITIS
     Dosage: 1 TSP-TBSP, 2 TIMES A DAY
     Route: 061
     Dates: start: 201403
  3. MELOXICAM [Concomitant]
     Indication: OSTEOARTHRITIS
     Dosage: 15 MG, UNK

REACTIONS (3)
  - Gastric ulcer [Recovered/Resolved]
  - Incorrect dose administered [Unknown]
  - Therapeutic response decreased [Unknown]
